FAERS Safety Report 17885022 (Version 2)
Quarter: 2020Q2

REPORT INFORMATION
  Report Type: Spontaneous
  Country: US (occurrence: US)
  Receive Date: 20200611
  Receipt Date: 20200624
  Transmission Date: 20200714
  Serious: No
  Sender: FDA-Public Use
  Company Number: US-ASTRAZENECA-2020SE65643

PATIENT
  Sex: Female

DRUGS (3)
  1. PRILOSEC [Concomitant]
     Active Substance: OMEPRAZOLE MAGNESIUM
     Indication: ABDOMINAL DISCOMFORT
  2. PULMICORT FLEXHALER [Suspect]
     Active Substance: BUDESONIDE
     Indication: ASTHMA
     Route: 055
     Dates: start: 20200502
  3. CEPHALEXIN. [Concomitant]
     Active Substance: CEPHALEXIN
     Indication: BLADDER DISORDER

REACTIONS (3)
  - Drug ineffective [Unknown]
  - Device issue [Unknown]
  - Dyspnoea [Unknown]
